FAERS Safety Report 9683279 (Version 1)
Quarter: 2013Q4

REPORT INFORMATION
  Report Type: Spontaneous
  Country: US (occurrence: None)
  Receive Date: 20131111
  Receipt Date: 20131111
  Transmission Date: 20140711
  Serious: Yes (Other)
  Sender: FDA-Public Use
  Company Number: None

PATIENT
  Age: 68 Year
  Sex: Male
  Weight: 103 kg

DRUGS (6)
  1. ENZALUTAMIDE [Suspect]
     Indication: PROSTATE CANCER METASTATIC
     Dosage: 4 CAPS QD ORAL
  2. CARVEDIOL (COREG) [Concomitant]
  3. ATORVASTATIN (LIPITOR) [Concomitant]
  4. ASPIRIN [Concomitant]
  5. PLAVIX [Concomitant]
  6. COQ10 [Concomitant]

REACTIONS (2)
  - Mucosal inflammation [None]
  - Swollen tongue [None]
